FAERS Safety Report 18657611 (Version 1)
Quarter: 2020Q4

REPORT INFORMATION
  Report Type: Report from Study
  Country: BR (occurrence: BR)
  Receive Date: 20201223
  Receipt Date: 20201223
  Transmission Date: 20210114
  Serious: Yes (Other)
  Sender: FDA-Public Use
  Company Number: BR-BAYER-2020-272994

PATIENT
  Age: 38 Year
  Sex: Female

DRUGS (11)
  1. INTERFERON BETA-1B (INTERFERON BETA-1B) POWDER [Suspect]
     Active Substance: INTERFERON BETA-1B
     Indication: MULTIPLE SCLEROSIS
     Dosage: 44 MG, (MONDAY, WEDNESDAY AND FRIDAY)  STOPPED ON 02 SEP 2020 OR 09 SEP 2020, ROUTE  ARM, BELLY AND
     Route: 065
     Dates: start: 20190821
  2. GILENYA [Suspect]
     Active Substance: FINGOLIMOD HYDROCHLORIDE
     Indication: MULTIPLE SCLEROSIS
     Dosage: UNK
  3. GILENYA [Suspect]
     Active Substance: FINGOLIMOD HYDROCHLORIDE
     Indication: MULTIPLE SCLEROSIS
     Dosage: UNK
     Dates: start: 20190916
  4. GILENYA [Suspect]
     Active Substance: FINGOLIMOD HYDROCHLORIDE
     Indication: MULTIPLE SCLEROSIS
     Dosage: UNK
     Route: 065
  5. GILENYA [Suspect]
     Active Substance: FINGOLIMOD HYDROCHLORIDE
     Indication: MULTIPLE SCLEROSIS
     Dosage: 0.5  QD
     Dates: start: 20190916
  6. DIENOGEST [Concomitant]
     Active Substance: DIENOGEST
     Dosage: UNK
  7. INTERFERON BETA-1B (INTERFERON BETA-1B) POWDER [Suspect]
     Active Substance: INTERFERON BETA-1B
     Indication: MULTIPLE SCLEROSIS
     Dosage: UNK
     Route: 065
     Dates: start: 201805
  8. FLANCOX [Concomitant]
     Active Substance: ETODOLAC
     Dosage: UNK
     Dates: start: 20200920
  9. COLLAGEN [Concomitant]
     Active Substance: COLLAGEN
     Dosage: UNK
  10. GILENYA [Suspect]
     Active Substance: FINGOLIMOD HYDROCHLORIDE
     Indication: MULTIPLE SCLEROSIS
     Dosage: 0.5 MG, QD
     Route: 065
     Dates: start: 20190916
  11. GILENYA [Suspect]
     Active Substance: FINGOLIMOD HYDROCHLORIDE
     Indication: MULTIPLE SCLEROSIS
     Dosage: 0.5 MG, QD
     Dates: start: 20190916

REACTIONS (47)
  - Constipation [None]
  - Fear [None]
  - Hemiparaesthesia [None]
  - Pain in extremity [None]
  - Heart rate increased [None]
  - Arthropathy [None]
  - Somnolence [None]
  - Skin texture abnormal [None]
  - Multiple sclerosis relapse [None]
  - Abdominal mass [None]
  - Paraesthesia [None]
  - Visual impairment [None]
  - Insomnia [None]
  - Musculoskeletal disorder [None]
  - Peripheral swelling [None]
  - Tendonitis [Recovering/Resolving]
  - Dizziness [None]
  - Headache [None]
  - Memory impairment [None]
  - Gait deviation [Not Recovered/Not Resolved]
  - Arthralgia [Not Recovered/Not Resolved]
  - Nervousness [None]
  - Mass [None]
  - Head discomfort [None]
  - Speech disorder [None]
  - Asthenia [None]
  - Hypersensitivity [None]
  - Bone swelling [None]
  - Limb discomfort [None]
  - Acne [None]
  - Skin discolouration [None]
  - Pain [None]
  - Pruritus [None]
  - Hemiparesis [None]
  - Hypoaesthesia [None]
  - Tenosynovitis [None]
  - Nausea [None]
  - Chest pain [None]
  - Ageusia [None]
  - Tremor [None]
  - Limb mass [None]
  - Agitation [None]
  - Multiple sclerosis [None]
  - Spinal cord injury [None]
  - Central nervous system lesion [None]
  - Hypoacusis [None]
  - Haematoma [None]
